FAERS Safety Report 5498829-4 (Version None)
Quarter: 2007Q4

REPORT INFORMATION
  Report Type: 
  Country: None (occurrence: None)
  Receive Date: 20071026
  Receipt Date: 20070724
  Transmission Date: 20080405
  Serious: No
  Sender: FDA-Public Use
  Company Number: A0666064A

PATIENT
  Age: 84 Year
  Sex: Female

DRUGS (11)
  1. ADVAIR DISKUS 100/50 [Suspect]
     Indication: CHRONIC OBSTRUCTIVE PULMONARY DISEASE
     Route: 055
  2. ALBUTEROL [Concomitant]
  3. COZAAR [Concomitant]
  4. BETA BLOCKER [Concomitant]
  5. DIGOXIN [Concomitant]
  6. METOPROLOL [Concomitant]
  7. DIABETA [Concomitant]
  8. DYAZIDE [Concomitant]
  9. CATAPRES [Concomitant]
  10. IPRATROPIUM BROMIDE [Concomitant]
  11. XANAX [Concomitant]

REACTIONS (3)
  - DYSGEUSIA [None]
  - EXCESSIVE EYE BLINKING [None]
  - VISION BLURRED [None]
